FAERS Safety Report 7203884-7 (Version None)
Quarter: 2010Q4

REPORT INFORMATION
  Report Type: 
  Country: None (occurrence: None)
  Receive Date: 20101230
  Receipt Date: 20101216
  Transmission Date: 20110411
  Serious: Yes (Death, Other)
  Sender: FDA-Public Use
  Company Number: GR-CELGENEUS-066-CCAZA-10122311

PATIENT

DRUGS (4)
  1. AZACITIDINE [Suspect]
     Route: 065
  2. AZACITIDINE [Suspect]
  3. AZACITIDINE [Suspect]
  4. EPO [Concomitant]
     Route: 065

REACTIONS (7)
  - CEREBRAL HAEMORRHAGE [None]
  - DISEASE PROGRESSION [None]
  - ECCHYMOSIS [None]
  - FEBRILE NEUTROPENIA [None]
  - HAEMATOMA [None]
  - NAUSEA [None]
  - RENAL FAILURE [None]
